FAERS Safety Report 4824586-8 (Version None)
Quarter: 2005Q4

REPORT INFORMATION
  Report Type: 
  Country: None (occurrence: None)
  Receive Date: 20051108
  Receipt Date: 20051028
  Transmission Date: 20060501
  Serious: Yes (Death, Life-Threatening, Hospitalization, Disabling)
  Sender: FDA-Public Use
  Company Number: EWC050946081

PATIENT
  Age: 67 Year
  Sex: Female
  Weight: 55 kg

DRUGS (11)
  1. FORTEO [Suspect]
     Indication: OSTEOPOROSIS
     Dosage: 20 UG DAY
     Dates: start: 20040816, end: 20050227
  2. MADOPAR [Concomitant]
  3. BUMETANIDE [Concomitant]
  4. POTASSIUM CHLORIDE [Concomitant]
  5. MAGNYL [Concomitant]
  6. UNIKALK [Concomitant]
  7. DIGOXIN [Concomitant]
  8. AKARIN (CITALOPRAM) [Concomitant]
  9. RISPERDAL [Concomitant]
  10. WARFARIN SODIUM [Concomitant]
  11. LACTULOSE [Concomitant]

REACTIONS (2)
  - PNEUMONIA [None]
  - RESPIRATORY FAILURE [None]
